FAERS Safety Report 4709911-0 (Version None)
Quarter: 2005Q3

REPORT INFORMATION
  Report Type: 
  Country: None (occurrence: None)
  Receive Date: 20050708
  Receipt Date: 20050707
  Transmission Date: 20060218
  Serious: Yes (Death, Hospitalization)
  Sender: FDA-Public Use
  Company Number: PHRM2005FR02045

PATIENT
  Age: 80 Year
  Sex: Male

DRUGS (2)
  1. LEPONEX [Suspect]
     Dosage: 50 MG/DAY
     Route: 048
     Dates: start: 20030329, end: 20030329
  2. LEPONEX [Suspect]
     Dosage: 150 MG/DAY
     Route: 048
     Dates: start: 20030330, end: 20030331

REACTIONS (5)
  - ELECTROENCEPHALOGRAM ABNORMAL [None]
  - EPILEPSY [None]
  - EYE MOVEMENT DISORDER [None]
  - MYOCLONUS [None]
  - PETIT MAL EPILEPSY [None]
